FAERS Safety Report 8449829-3 (Version None)
Quarter: 2012Q2

REPORT INFORMATION
  Report Type: 
  Country: None (occurrence: None)
  Receive Date: 20120620
  Receipt Date: 20120606
  Transmission Date: 20120825
  Serious: Yes (Hospitalization, Other)
  Sender: FDA-Public Use
  Company Number: US-ELI_LILLY_AND_COMPANY-US201012005212

PATIENT
  Age: 48 Year
  Sex: Female

DRUGS (5)
  1. SKELAXIN [Concomitant]
     Indication: FIBROMYALGIA
  2. AMITRIPTYLINE HCL [Concomitant]
     Indication: FIBROMYALGIA
     Dosage: 50 MG, UNK
  3. VOLTAREN [Concomitant]
     Indication: FIBROMYALGIA
     Dosage: 50 MG, UNK
  4. CYMBALTA [Suspect]
     Indication: DEPRESSION
     Dosage: 30 MG, 2/D
  5. TRAMADOL HCL [Concomitant]
     Indication: FIBROMYALGIA

REACTIONS (5)
  - LOSS OF CONSCIOUSNESS [None]
  - RENAL FAILURE ACUTE [None]
  - RHABDOMYOLYSIS [None]
  - LIMB INJURY [None]
  - COMPARTMENT SYNDROME [None]
